FAERS Safety Report 8580566-0 (Version None)
Quarter: 2012Q3

REPORT INFORMATION
  Report Type: 
  Country: None (occurrence: None)
  Receive Date: 20120808
  Receipt Date: 20120705
  Transmission Date: 20120928
  Serious: Yes (Hospitalization, Other)
  Sender: FDA-Public Use
  Company Number: PHEH2012US007159

PATIENT
  Sex: Male
  Weight: 88.435 kg

DRUGS (1)
  1. GILENYA [Suspect]
     Indication: MULTIPLE SCLEROSIS
     Dosage: 0.5 MG, QD
     Route: 048
     Dates: start: 20110713

REACTIONS (5)
  - VISION BLURRED [None]
  - HYPERGLYCAEMIA [None]
  - POLLAKIURIA [None]
  - THIRST [None]
  - POLYURIA [None]
